FAERS Safety Report 25341087 (Version 1)
Quarter: 2025Q2

REPORT INFORMATION
  Report Type: Report from Study
  Country: US (occurrence: US)
  Receive Date: 20250521
  Receipt Date: 20250521
  Transmission Date: 20250716
  Serious: Yes (Other)
  Sender: ROCHE
  Company Number: US-ROCHE-10000285034

PATIENT
  Age: 89 Year
  Sex: Female

DRUGS (1)
  1. ALECENSA [Suspect]
     Active Substance: ALECTINIB HYDROCHLORIDE
     Indication: Lung neoplasm malignant
     Dosage: TAKE 2 CAPSULES BY MOUTH (300MG)
     Route: 048

REACTIONS (3)
  - Feeling abnormal [Unknown]
  - Amnesia [Unknown]
  - Lung cancer metastatic [Unknown]
